FAERS Safety Report 6493653-8 (Version None)
Quarter: 2009Q4

REPORT INFORMATION
  Report Type: 
  Country: None (occurrence: None)
  Receive Date: 20091214
  Receipt Date: 20091207
  Transmission Date: 20100525
  Serious: Yes (Life-Threatening, Hospitalization)
  Sender: FDA-Public Use
  Company Number: B0520421A

PATIENT
  Age: 24 Year
  Sex: Female

DRUGS (8)
  1. CLOZARIL [Suspect]
     Indication: SCHIZOPHRENIA
     Dosage: 700MG PER DAY
     Route: 048
     Dates: start: 20030623, end: 20060504
  2. SERTRALINE HCL [Suspect]
  3. CLOZARIL [Suspect]
     Route: 048
  4. HYOSCINE [Suspect]
  5. AMOXICILLIN [Suspect]
  6. ANTIBIOTICS [Suspect]
     Indication: DRUG USE FOR UNKNOWN INDICATION
  7. MOCLOBEMIDE [Concomitant]
     Indication: DEPRESSION
     Dosage: 600MG PER DAY
     Route: 048
  8. SULPIRIDE [Concomitant]
     Indication: SCHIZOPHRENIA
     Dosage: 400MG PER DAY
     Route: 048

REACTIONS (5)
  - LIVER FUNCTION TEST ABNORMAL [None]
  - LOSS OF CONSCIOUSNESS [None]
  - OVERDOSE [None]
  - VOMITING [None]
  - WEIGHT DECREASED [None]
